FAERS Safety Report 9827637 (Version 2)
Quarter: 2014Q1

REPORT INFORMATION
  Report Type: Spontaneous
  Country: US (occurrence: US)
  Receive Date: 20140117
  Receipt Date: 20140227
  Transmission Date: 20141002
  Serious: No
  Sender: FDA-Public Use
  Company Number: US-PFIZER INC-2014013096

PATIENT
  Age: 50 Year
  Sex: Female
  Weight: 48.53 kg

DRUGS (4)
  1. CELEBREX [Suspect]
     Indication: ARTHRITIS
     Dosage: 200 MG, DAILY
  2. CELEBREX [Suspect]
     Indication: RHEUMATOID ARTHRITIS
     Dosage: 200 MG, 2X/DAY
  3. CELEBREX [Suspect]
     Dosage: 200 MG, DAILY
  4. HUMALOG [Concomitant]
     Indication: DIABETES MELLITUS
     Dosage: UNK

REACTIONS (6)
  - Extra dose administered [Unknown]
  - Local swelling [Recovered/Resolved]
  - Swelling face [Not Recovered/Not Resolved]
  - Weight increased [Unknown]
  - Hot flush [Unknown]
  - Pain [Recovering/Resolving]
